FAERS Safety Report 8470293-2 (Version None)
Quarter: 2012Q2

REPORT INFORMATION
  Report Type: 
  Country: None (occurrence: None)
  Receive Date: 20120627
  Receipt Date: 20120614
  Transmission Date: 20120825
  Serious: Yes (Hospitalization, Other)
  Sender: FDA-Public Use
  Company Number: FR-CELGENEUS-056-21880-12062221

PATIENT
  Sex: Male

DRUGS (12)
  1. LERCAPRESS [Concomitant]
     Indication: HYPERTENSION
     Route: 065
     Dates: start: 20090601
  2. ASPIRIN [Concomitant]
     Indication: THROMBOSIS PROPHYLAXIS
     Route: 065
     Dates: start: 20101201
  3. VALACYCLOVIR HYDROCHLORIDE [Concomitant]
     Indication: VIRAL INFECTION
     Route: 065
     Dates: start: 20110516, end: 20120125
  4. INDAPAMIDE [Concomitant]
     Indication: HYPERTENSION
     Route: 065
     Dates: start: 20090601
  5. BACTRIM [Concomitant]
     Indication: PNEUMOCYSTIS TEST POSITIVE
     Route: 065
     Dates: start: 20110516, end: 20120125
  6. DEXAMETHASONE [Suspect]
     Route: 065
     Dates: start: 20110524
  7. FERROUS SULFATE TAB [Concomitant]
     Indication: IRON DEFICIENCY
     Route: 065
     Dates: start: 20100301
  8. ALLOPURINOL [Concomitant]
     Route: 065
     Dates: start: 20101201
  9. LEUCOVORIN CALCIUM [Concomitant]
     Route: 065
     Dates: start: 20110516, end: 20120125
  10. INNOHEP [Concomitant]
     Indication: THROMBOSIS PROPHYLAXIS
     Route: 065
     Dates: start: 20110516, end: 20120125
  11. REVLIMID [Suspect]
     Dosage: 25 MILLIGRAM
     Route: 048
     Dates: start: 20110524
  12. BORTEZOMIB [Suspect]
     Route: 065
     Dates: start: 20110524

REACTIONS (1)
  - THYROID CANCER [None]
